FAERS Safety Report 9688640 (Version 1)
Quarter: 2013Q4

REPORT INFORMATION
  Report Type: Spontaneous
  Country: US (occurrence: US)
  Receive Date: 20131114
  Receipt Date: 20131114
  Transmission Date: 20140711
  Serious: Yes (Other)
  Sender: FDA-Public Use
  Company Number: US-ASTRAZENECA-2013SE82499

PATIENT
  Age: 75 Year
  Sex: Female
  Weight: 80.7 kg

DRUGS (6)
  1. ARIMIDEX [Suspect]
     Indication: BREAST CANCER FEMALE
     Route: 048
     Dates: start: 201310
  2. MULTIPLE VITAMINS [Concomitant]
  3. VITAMIN D [Concomitant]
  4. NUTRIENTS [Concomitant]
  5. TYLENOL [Concomitant]
  6. HERCEPTIN [Concomitant]
     Indication: NEOPLASM MALIGNANT
     Dosage: Q3WK
     Route: 042
     Dates: start: 2013

REACTIONS (7)
  - Cardiac flutter [Not Recovered/Not Resolved]
  - Epistaxis [Not Recovered/Not Resolved]
  - Tinnitus [Not Recovered/Not Resolved]
  - Palpitations [Not Recovered/Not Resolved]
  - Malaise [Not Recovered/Not Resolved]
  - Fatigue [Not Recovered/Not Resolved]
  - Fatigue [Not Recovered/Not Resolved]
